FAERS Safety Report 14556447 (Version 1)
Quarter: 2018Q1

REPORT INFORMATION
  Report Type: Spontaneous
  Country: US (occurrence: US)
  Receive Date: 20180219
  Receipt Date: 20180219
  Transmission Date: 20180509
  Serious: Yes (Life-Threatening)
  Sender: FDA-Public Use
  Company Number: None

PATIENT
  Age: 58 Year
  Sex: Female

DRUGS (1)
  1. DAPTMYCIN [Suspect]
     Active Substance: DAPTOMYCIN
     Indication: OSTEOMYELITIS ACUTE
     Route: 042
     Dates: start: 20180215, end: 20180216

REACTIONS (4)
  - Hypersensitivity [None]
  - Respiratory disorder [None]
  - Chills [None]
  - Panic attack [None]

NARRATIVE: CASE EVENT DATE: 20180216
